FAERS Safety Report 14756389 (Version 1)
Quarter: 2018Q2

REPORT INFORMATION
  Report Type: Spontaneous
  Country: US (occurrence: US)
  Receive Date: 20180413
  Receipt Date: 20180413
  Transmission Date: 20180711
  Serious: Yes (Other)
  Sender: FDA-Public Use
  Company Number: US-ASTRAZENECA-2018SE44558

PATIENT
  Age: 54 Year
  Sex: Female
  Weight: 99.8 kg

DRUGS (5)
  1. TRESIBA [Concomitant]
     Active Substance: INSULIN DEGLUDEC
     Dosage: 46 UNITS
     Dates: start: 201609
  2. VITAMIN B12 [Concomitant]
     Active Substance: CYANOCOBALAMIN
  3. INVOKANA [Concomitant]
     Active Substance: CANAGLIFLOZIN
     Dates: start: 201508
  4. BYETTA [Suspect]
     Active Substance: EXENATIDE
     Route: 065
  5. GLIMEPIRIDE. [Concomitant]
     Active Substance: GLIMEPIRIDE
     Dates: start: 201508

REACTIONS (1)
  - Medullary thyroid cancer [Unknown]

NARRATIVE: CASE EVENT DATE: 20170815
